FAERS Safety Report 7677388-1 (Version None)
Quarter: 2011Q3

REPORT INFORMATION
  Report Type: 
  Country: None (occurrence: None)
  Receive Date: 20110808
  Receipt Date: 20110725
  Transmission Date: 20111222
  Serious: Yes (Other)
  Sender: FDA-Public Use
  Company Number: JHP201100369

PATIENT
  Age: 75 Year
  Sex: Male

DRUGS (1)
  1. DANTRIUM [Suspect]
     Dosage: 150 MG, DAILY, ORAL
     Route: 048

REACTIONS (2)
  - ALTERED STATE OF CONSCIOUSNESS [None]
  - DRUG LEVEL INCREASED [None]
